FAERS Safety Report 6471098-4 (Version None)
Quarter: 2009Q4

REPORT INFORMATION
  Report Type: 
  Country: None (occurrence: None)
  Receive Date: 20091119
  Receipt Date: 20090808
  Transmission Date: 20100525
  Serious: No
  Sender: FDA-Public Use
  Company Number: WAES 0908USA01366

PATIENT
  Age: 80 Year
  Sex: Male
  Weight: 116.1208 kg

DRUGS (1)
  1. JANUVIA [Suspect]
     Dosage: 100 MG/DAILY/PO
     Route: 048

REACTIONS (2)
  - INCORRECT DOSE ADMINISTERED [None]
  - RENAL IMPAIRMENT [None]
